FAERS Safety Report 4420471-4 (Version None)
Quarter: 2004Q3

REPORT INFORMATION
  Report Type: 
  Country: None (occurrence: None)
  Receive Date: 20040805
  Receipt Date: 20040805
  Transmission Date: 20050211
  Serious: Yes (Other)
  Sender: FDA-Public Use
  Company Number: None

PATIENT
  Age: 79 Year
  Sex: Male
  Weight: 72.6 kg

DRUGS (13)
  1. FLUNISOLIDE [Suspect]
  2. FUROSEMIDE [Concomitant]
  3. SODIUM CHLORIDE INJ [Concomitant]
  4. FLUNISOLIDE [Concomitant]
  5. LORATADINE [Concomitant]
  6. PHENYLEPHRINE HCL [Concomitant]
  7. ALLOPURINOL [Concomitant]
  8. ATENOLOL [Concomitant]
  9. CYANOCOBALAMIN [Concomitant]
  10. LOVASTATIN [Concomitant]
  11. UREA [Concomitant]
  12. ADALAT CC [Concomitant]
  13. TERAZOSIN HCL [Concomitant]

REACTIONS (2)
  - NASAL DISCOMFORT [None]
  - THROAT IRRITATION [None]
